FAERS Safety Report 7887991-1 (Version None)
Quarter: 2011Q4

REPORT INFORMATION
  Report Type: 
  Country: None (occurrence: None)
  Receive Date: 20111101
  Receipt Date: 20111027
  Transmission Date: 20120403
  Serious: Yes (Other)
  Sender: FDA-Public Use
  Company Number: AUR-APL-2010-02456

PATIENT
  Age: 49 Year
  Sex: Female

DRUGS (7)
  1. LAMOTRIGINE [Suspect]
     Indication: CONVULSION
     Dosage: (50 MG)
     Dates: end: 20100801
  2. CLOZARIL [Suspect]
     Indication: SCHIZOPHRENIA
     Dosage: (600 MG,1 IN 1 D),ORAL ; (600 MG,1 IN 1 D),ORAL
     Route: 048
     Dates: start: 20050207
  3. CLOZARIL [Suspect]
     Indication: SCHIZOPHRENIA
     Dosage: (600 MG,1 IN 1 D),ORAL ; (600 MG,1 IN 1 D),ORAL
     Route: 048
     Dates: start: 20050207
  4. PAROXETINE (PAROXETINE) (PAROXETINE) [Concomitant]
  5. TEMAZEPAM [Concomitant]
  6. AMISULPRIDE (AMISULPRIDE, AMISULPRIDE) [Suspect]
     Indication: SCHIZOPHRENIA
     Dosage: (200 MG),ORAL ; ORAL
     Route: 048
     Dates: end: 20100801
  7. RAMIPRIL [Concomitant]

REACTIONS (8)
  - BREAST CANCER [None]
  - HAEMOGLOBIN DECREASED [None]
  - MENTAL IMPAIRMENT [None]
  - ABSCESS [None]
  - BREAST ABSCESS [None]
  - WHITE BLOOD CELL COUNT INCREASED [None]
  - METASTASES TO SPINE [None]
  - PLATELET COUNT DECREASED [None]
